FAERS Safety Report 4478245-4 (Version None)
Quarter: 2004Q3

REPORT INFORMATION
  Report Type: 
  Country: None (occurrence: None)
  Receive Date: 20040923
  Receipt Date: 20040726
  Transmission Date: 20050211
  Serious: No
  Sender: FDA-Public Use
  Company Number: USA040773717

PATIENT
  Age: 75 Year
  Sex: Female

DRUGS (6)
  1. FORTEO [Suspect]
     Indication: OSTEOPOROSIS
     Dates: start: 20040601
  2. TUMS (CALCIUM CARBONATE) [Concomitant]
  3. LISINOPRIL [Concomitant]
  4. PERCOCET [Concomitant]
  5. LIPITOR [Concomitant]
  6. CARDIZEM CD [Concomitant]

REACTIONS (4)
  - BACK PAIN [None]
  - CYSTITIS [None]
  - DIFFICULTY IN WALKING [None]
  - PAIN IN EXTREMITY [None]
